FAERS Safety Report 19911804 (Version 1)
Quarter: 2021Q4

REPORT INFORMATION
  Report Type: Report from Study
  Country: GB (occurrence: GB)
  Receive Date: 20211004
  Receipt Date: 20211004
  Transmission Date: 20220304
  Serious: Yes (Other)
  Sender: FDA-Public Use
  Company Number: GB-KOREA IPSEN PHARMA-2021-21515

PATIENT
  Age: 69 Year
  Sex: Female

DRUGS (1)
  1. LANREOTIDE ACETATE [Suspect]
     Active Substance: LANREOTIDE ACETATE
     Indication: Neuroendocrine tumour
     Dosage: 120 MG/ 0.5 ML EVERY 28 DAYS
     Route: 058

REACTIONS (5)
  - Haemorrhage [Unknown]
  - Daydreaming [Unknown]
  - Anxiety [Unknown]
  - Anxiety [Unknown]
  - Negative thoughts [Unknown]

NARRATIVE: CASE EVENT DATE: 20210801
